FAERS Safety Report 4429617-5 (Version None)
Quarter: 2004Q3

REPORT INFORMATION
  Report Type: 
  Country: None (occurrence: None)
  Receive Date: 20040819
  Receipt Date: 20040701
  Transmission Date: 20050211
  Serious: Yes (Other)
  Sender: FDA-Public Use
  Company Number: PHRM2004FR02278

PATIENT
  Age: 66 Year
  Sex: Male
  Weight: 76 kg

DRUGS (2)
  1. LIORESAL [Suspect]
     Indication: NYSTAGMUS
     Dosage: 45 MG/DAY
     Route: 048
     Dates: start: 20040401
  2. LIORESAL [Suspect]
     Dosage: 30 MG/DAY
     Route: 048
     Dates: start: 20040101

REACTIONS (3)
  - ARRHYTHMIA [None]
  - BRADYCARDIA [None]
  - DYSPNOEA [None]
